FAERS Safety Report 7584358-0 (Version None)
Quarter: 2011Q2

REPORT INFORMATION
  Report Type: 
  Country: None (occurrence: None)
  Receive Date: 20110630
  Receipt Date: 20110628
  Transmission Date: 20111010
  Serious: No
  Sender: FDA-Public Use
  Company Number: US-PFIZER INC-2011145175

PATIENT

DRUGS (1)
  1. GEODON [Suspect]
     Dosage: UNK

REACTIONS (2)
  - DYSPHAGIA [None]
  - TREATMENT NONCOMPLIANCE [None]
